FAERS Safety Report 10081286 (Version 2)
Quarter: 2014Q2

REPORT INFORMATION
  Report Type: Spontaneous
  Country: US (occurrence: US)
  Receive Date: 20140416
  Receipt Date: 20140430
  Transmission Date: 20141212
  Serious: Yes (Death)
  Sender: FDA-Public Use
  Company Number: US-JNJFOC-20140406357

PATIENT
  Age: 82 Year
  Sex: Male

DRUGS (2)
  1. ZYTIGA [Suspect]
     Indication: PROSTATE CANCER METASTATIC
     Dosage: 250 MGX4
     Route: 048
     Dates: start: 20130815, end: 20131212
  2. PREDNISONE [Concomitant]
     Indication: PROSTATE CANCER METASTATIC
     Route: 065

REACTIONS (1)
  - Death [Fatal]
